FAERS Safety Report 23173799 (Version 1)
Quarter: 2023Q4

REPORT INFORMATION
  Report Type: Spontaneous
  Country: LK (occurrence: LK)
  Receive Date: 20231111
  Receipt Date: 20231111
  Transmission Date: 20240109
  Serious: Yes (Death, Hospitalization)
  Sender: FDA-Public Use
  Company Number: LK-STERISCIENCE B.V.-2023-ST-002148

PATIENT
  Age: 2 Month
  Sex: Male

DRUGS (6)
  1. BUPIVACAINE [Suspect]
     Active Substance: BUPIVACAINE
     Indication: General anaesthesia
     Dosage: 2 MILLILITER
     Route: 065
  2. FENTANYL [Suspect]
     Active Substance: FENTANYL\FENTANYL CITRATE
     Indication: General anaesthesia
     Dosage: DOSE: 1MIC/KG
     Route: 042
  3. PROPOFOL [Suspect]
     Active Substance: PROPOFOL
     Indication: General anaesthesia
     Dosage: 3 MILLIGRAM/KILOGRAM
     Route: 065
  4. SEVOFLURANE [Suspect]
     Active Substance: SEVOFLURANE
     Indication: General anaesthesia
     Dosage: UNK
     Route: 065
  5. MORPHINE [Suspect]
     Active Substance: MORPHINE
     Indication: General anaesthesia
     Dosage: 0.1 MILLIGRAM/KILOGRAM
     Route: 042
  6. MORPHINE [Suspect]
     Active Substance: MORPHINE
     Indication: Analgesic therapy

REACTIONS (2)
  - Apnoea [Fatal]
  - Off label use [Unknown]
